FAERS Safety Report 8549996-7 (Version None)
Quarter: 2012Q3

REPORT INFORMATION
  Report Type: 
  Country: None (occurrence: None)
  Receive Date: 20120730
  Receipt Date: 20120727
  Transmission Date: 20120928
  Serious: Yes (Death, Other)
  Sender: FDA-Public Use
  Company Number: AU-B.I. PHARMACEUTICALS,INC./RIDGEFIELD-2012-AU-01134AU

PATIENT
  Sex: Female
  Weight: 90 kg

DRUGS (16)
  1. SPIRIVA [Concomitant]
  2. LUMIGAN [Concomitant]
  3. VITAMIN D [Concomitant]
  4. PRADAXA [Suspect]
     Indication: CEREBROVASCULAR ACCIDENT PROPHYLAXIS
     Dates: start: 20110610
  5. ACIMAX [Concomitant]
  6. PERINDOPRIL ERBUMINE [Concomitant]
  7. DIGOXIN [Concomitant]
  8. NEO B12 [Concomitant]
  9. METOPROLOL TARTRATE [Concomitant]
  10. PRADAXA [Suspect]
     Indication: ATRIAL FIBRILLATION
  11. LASIX [Concomitant]
  12. ALLOPURINOL [Concomitant]
  13. ASPIRIN [Concomitant]
  14. ENDEP [Concomitant]
  15. COSOPT [Concomitant]
  16. IOPIDINE [Concomitant]

REACTIONS (6)
  - RENAL IMPAIRMENT [None]
  - ERYTHEMA [None]
  - LYMPHOMA [None]
  - SEPSIS [None]
  - PNEUMOTHORAX [None]
  - PLEURAL EFFUSION [None]
